FAERS Safety Report 16146000 (Version 2)
Quarter: 2019Q2

REPORT INFORMATION
  Report Type: Spontaneous
  Country: FR (occurrence: FR)
  Receive Date: 20190402
  Receipt Date: 20190429
  Transmission Date: 20190711
  Serious: Yes (Hospitalization)
  Sender: FDA-Public Use
  Company Number: FR-ACCORD-117092

PATIENT
  Age: 61 Year
  Sex: Female
  Weight: 86 kg

DRUGS (15)
  1. PRIMPERAN [Concomitant]
     Active Substance: METOCLOPRAMIDE HYDROCHLORIDE
  2. KARDEGIC [Concomitant]
     Active Substance: ASPIRIN DL-LYSINE
  3. LEVOTHYROXINE. [Concomitant]
     Active Substance: LEVOTHYROXINE
  4. VALSARTAN. [Concomitant]
     Active Substance: VALSARTAN
  5. ZOPHREN [Concomitant]
     Active Substance: ONDANSETRON
     Dates: start: 20190114, end: 20190114
  6. METFORMIN [Concomitant]
     Active Substance: METFORMIN HYDROCHLORIDE
  7. SOLUPRED [Concomitant]
     Dates: start: 20190114, end: 20190114
  8. EFFERALGAN [Concomitant]
     Active Substance: ACETAMINOPHEN
  9. GAVISCON [Concomitant]
     Active Substance: ALUMINUM HYDROXIDE\MAGNESIUM CARBONATE
  10. ALIMTA [Concomitant]
     Active Substance: PEMETREXED DISODIUM
     Dates: start: 20190114, end: 20190114
  11. LORAZEPAM. [Concomitant]
     Active Substance: LORAZEPAM
  12. JANUVIA [Concomitant]
     Active Substance: SITAGLIPTIN PHOSPHATE
  13. CARBOPLATIN ACCORD [Suspect]
     Active Substance: CARBOPLATIN
     Indication: LUNG ADENOCARCINOMA
     Route: 041
     Dates: start: 20190114, end: 20190114
  14. NEULASTA [Concomitant]
     Active Substance: PEGFILGRASTIM
  15. EMEND [Concomitant]
     Active Substance: APREPITANT
     Dates: start: 20190114, end: 20190114

REACTIONS (3)
  - Generalised erythema [Recovered/Resolved]
  - Pruritus [Recovered/Resolved]
  - Abdominal pain upper [Recovered/Resolved]

NARRATIVE: CASE EVENT DATE: 20190114
